FAERS Safety Report 4366042-X (Version None)
Quarter: 2004Q2

REPORT INFORMATION
  Report Type: 
  Country: None (occurrence: None)
  Receive Date: 20040524
  Receipt Date: 20040513
  Transmission Date: 20050107
  Serious: Yes (Other)
  Sender: FDA-Public Use
  Company Number: 8021

PATIENT
  Age: 29 Year
  Sex: Female

DRUGS (7)
  1. ATRACURIUM BESYLATE [Suspect]
     Indication: ANAESTHESIA
  2. FENTANYL [Concomitant]
  3. PROPOFOL [Concomitant]
  4. NITROUS OXIDE [Concomitant]
  5. ISOFLURANE [Concomitant]
  6. NEOSTIGMINE [Concomitant]
  7. GLYCOPYRRONIUM BROMIDE [Concomitant]

REACTIONS (2)
  - MUSCLE SPASMS [None]
  - TRISMUS [None]
